FAERS Safety Report 9812652 (Version 1)
Quarter: 2014Q1

REPORT INFORMATION
  Report Type: Report from Study
  Country: US (occurrence: US)
  Receive Date: 20140113
  Receipt Date: 20140113
  Transmission Date: 20141002
  Serious: Yes (Death)
  Sender: FDA-Public Use
  Company Number: US-ROCHE-1332560

PATIENT
  Age: 71 Year
  Sex: Female

DRUGS (10)
  1. AVASTIN [Suspect]
     Indication: BILIARY CANCER METASTATIC
     Route: 042
     Dates: start: 20120502, end: 20120516
  2. AVASTIN [Suspect]
     Indication: HEPATIC CANCER
     Route: 042
     Dates: start: 20120613
  3. AVASTIN [Suspect]
     Indication: LUNG NEOPLASM MALIGNANT
  4. XELODA [Suspect]
     Indication: PRODUCT USED FOR UNKNOWN INDICATION
     Route: 065
  5. MAGNESIUM SULFATE [Concomitant]
     Route: 042
     Dates: start: 20130613
  6. METOCLOPRAMIDE [Concomitant]
     Route: 042
     Dates: end: 20120613
  7. ATENOLOL [Concomitant]
     Route: 048
     Dates: start: 20120627
  8. LOSARTAN POTASSIUM [Concomitant]
     Route: 048
     Dates: start: 20120627
  9. HEPARIN [Concomitant]
  10. CLONIDINE [Concomitant]
     Route: 065

REACTIONS (3)
  - Death [Fatal]
  - Abdominal pain upper [Unknown]
  - Off label use [Unknown]
